FAERS Safety Report 5242816-8 (Version None)
Quarter: 2007Q1

REPORT INFORMATION
  Report Type: 
  Country: None (occurrence: None)
  Receive Date: 20070221
  Receipt Date: 20070212
  Transmission Date: 20070707
  Serious: Yes (Life-Threatening, Hospitalization)
  Sender: FDA-Public Use
  Company Number: US-ROCHE-482314

PATIENT
  Age: 34 Year
  Sex: Female
  Weight: 54.9 kg

DRUGS (3)
  1. PEG-INTERFERON A-2A (RO 25-8310) [Suspect]
     Route: 058
     Dates: start: 20060517, end: 20061115
  2. RIBAVIRIN [Suspect]
     Dosage: 200 MG GIVEN IN THE MORNING AND 400 MG GIVEN IN THE EVENING.
     Route: 048
     Dates: start: 20060517, end: 20061115
  3. HYDROCHLOROTHIAZIDE [Concomitant]

REACTIONS (3)
  - ANOXIC ENCEPHALOPATHY [None]
  - ASTHMA [None]
  - RESPIRATORY ARREST [None]
